FAERS Safety Report 6597660-6 (Version None)
Quarter: 2010Q1

REPORT INFORMATION
  Report Type: 
  Country: None (occurrence: None)
  Receive Date: 20100223
  Receipt Date: 20100210
  Transmission Date: 20100710
  Serious: Yes (Hospitalization, Other)
  Sender: FDA-Public Use
  Company Number: IE-MEDIMMUNE-MEDI-0010026

PATIENT
  Sex: Male
  Weight: 7.7 kg

DRUGS (1)
  1. SYNAGIS [Suspect]
     Route: 030
     Dates: start: 20091030, end: 20091030

REACTIONS (3)
  - BRONCHIOLITIS [None]
  - FEBRILE CONVULSION [None]
  - TONSILLITIS [None]
